FAERS Safety Report 24105762 (Version 2)
Quarter: 2024Q3

REPORT INFORMATION
  Report Type: Spontaneous
  Country: JP (occurrence: JP)
  Receive Date: 20240717
  Receipt Date: 20240909
  Transmission Date: 20241016
  Serious: Yes (Other)
  Sender: BAYER
  Company Number: JP-BAYER-2024A099392

PATIENT
  Age: 19 Year
  Sex: Male
  Weight: 55.5 kg

DRUGS (6)
  1. KOVALTRY [Suspect]
     Active Substance: ANTIHEMOPHILIC FACTOR, HUMAN RECOMBINANT
     Indication: Factor VIII deficiency
     Dosage: 3000 IU INTERNATIONAL UNIT(S), TIW
     Route: 042
     Dates: start: 20180112
  2. KOVALTRY [Suspect]
     Active Substance: ANTIHEMOPHILIC FACTOR, HUMAN RECOMBINANT
     Indication: Factor VIII deficiency
     Dosage: 3000 IU INTERNATIONAL UNIT(S), ONCE
     Route: 042
     Dates: start: 20240707, end: 20240707
  3. KOVALTRY [Suspect]
     Active Substance: ANTIHEMOPHILIC FACTOR, HUMAN RECOMBINANT
     Indication: Factor VIII deficiency
     Dosage: 3000 IU INTERNATIONAL UNIT(S), BID
     Route: 042
     Dates: start: 20240708, end: 20240708
  4. KOVALTRY [Suspect]
     Active Substance: ANTIHEMOPHILIC FACTOR, HUMAN RECOMBINANT
     Indication: Factor VIII deficiency
     Dosage: 3000 IU INTERNATIONAL UNIT(S), QD
     Route: 042
     Dates: start: 20240709, end: 20240713
  5. KOVALTRY [Suspect]
     Active Substance: ANTIHEMOPHILIC FACTOR, HUMAN RECOMBINANT
     Indication: Factor VIII deficiency
     Dosage: 3000 IU INTERNATIONAL UNIT(S), ONCE
     Route: 042
     Dates: start: 20240714, end: 20240714
  6. KOVALTRY [Suspect]
     Active Substance: ANTIHEMOPHILIC FACTOR, HUMAN RECOMBINANT
     Indication: Factor VIII deficiency
     Dosage: 3000 IU INTERNATIONAL UNIT(S), QOD
     Route: 042
     Dates: start: 20240715, end: 20240725

REACTIONS (7)
  - Muscle haemorrhage [Recovering/Resolving]
  - Arthralgia [Recovered/Resolved]
  - Haematoma [None]
  - Abdominal pain [Recovered/Resolved]
  - Intentional overdose [None]
  - Intentional overdose [None]
  - Intentional product use issue [None]

NARRATIVE: CASE EVENT DATE: 20240707
